FAERS Safety Report 23073411 (Version 1)
Quarter: 2023Q4

REPORT INFORMATION
  Report Type: Report from Study
  Country: BR (occurrence: BR)
  Receive Date: 20231017
  Receipt Date: 20231017
  Transmission Date: 20240109
  Serious: Yes (Death, Life-Threatening, Hospitalization, Disabling)
  Sender: FDA-Public Use
  Company Number: BR-002147023-NVSC2021BR077379

PATIENT
  Age: 32 Year
  Sex: Male
  Weight: 46.5 kg

DRUGS (26)
  1. CARBOPLATIN [Suspect]
     Active Substance: CARBOPLATIN
     Indication: B-cell lymphoma
     Dosage: 750 MG, ONCE/SINGLE
     Route: 042
     Dates: start: 20210127
  2. CISPLATIN [Suspect]
     Active Substance: CISPLATIN
     Indication: B-cell lymphoma
     Dosage: 146 MG, CONT
     Route: 042
     Dates: start: 20210212
  3. CYTARABINE [Suspect]
     Active Substance: CYTARABINE
     Indication: B-cell lymphoma
     Dosage: 5840 MG, BID
     Route: 042
     Dates: start: 20210213
  4. DEXAMETHASONE [Suspect]
     Active Substance: DEXAMETHASONE
     Indication: B-cell lymphoma
     Dosage: 160 MG, QD
     Route: 042
     Dates: start: 20210212
  5. ETOPOSIDE [Suspect]
     Active Substance: ETOPOSIDE
     Indication: B-cell lymphoma
     Dosage: 157 MG, ONCE/SINGLE
     Route: 042
     Dates: start: 20210126
  6. IBRUTINIB [Suspect]
     Active Substance: IBRUTINIB
     Indication: B-cell lymphoma
     Dosage: 7280 MG, QD
     Route: 048
     Dates: start: 20210325
  7. IFOSFAMIDE [Suspect]
     Active Substance: IFOSFAMIDE
     Indication: B-cell lymphoma
     Dosage: 7850 MG, CONT
     Route: 042
     Dates: start: 20210127
  8. METHOTREXATE [Suspect]
     Active Substance: METHOTREXATE
     Indication: Chemotherapy
     Dosage: 2210 MG, ONCE/SINGLE
     Route: 065
     Dates: start: 20210408, end: 20210408
  9. MESNA [Suspect]
     Active Substance: MESNA
     Indication: B-cell lymphoma
     Dosage: 7850 MG, CONT
     Route: 042
     Dates: start: 20210127, end: 20210408
  10. RITUXIMAB [Suspect]
     Active Substance: RITUXIMAB
     Indication: B-cell lymphoma
     Dosage: 588.75 MG, ONCE/SINGLE
     Route: 042
     Dates: start: 20210126
  11. EPINEPHRINE [Concomitant]
     Active Substance: EPINEPHRINE
     Indication: Epistaxis
     Dosage: UNK
     Route: 065
     Dates: start: 20210430, end: 20210430
  12. BISACODYL [Concomitant]
     Active Substance: BISACODYL
     Indication: Constipation
     Dosage: UNK
     Route: 065
     Dates: start: 20210404, end: 20210404
  13. CYCLOPHOSPHAMIDE [Concomitant]
     Active Substance: CYCLOPHOSPHAMIDE
     Indication: Chemotherapy
     Dosage: 372.5 MG, ONCE/SINGLE
     Route: 065
     Dates: start: 20210318, end: 20210318
  14. DIPYRONE [Concomitant]
     Active Substance: DIPYRONE
     Indication: Abdominal pain
     Dosage: UNK
     Route: 065
     Dates: start: 20210402, end: 20210404
  15. FLUDARABINE [Concomitant]
     Active Substance: FLUDARABINE PHOSPHATE
     Indication: Chemotherapy
     Dosage: 37.25 MG, ONCE/SINGLE
     Route: 065
     Dates: start: 20210318, end: 20210318
  16. POLYETHYLENE GLYCOLS [Concomitant]
     Active Substance: POLYETHYLENE GLYCOLS
     Indication: Constipation
     Dosage: UNK
     Route: 065
     Dates: start: 20210404, end: 20210404
  17. POLYETHYLENE GLYCOLS [Concomitant]
     Active Substance: POLYETHYLENE GLYCOLS
     Dosage: UNK
     Route: 065
     Dates: start: 20210406, end: 20210421
  18. MEROPENEM [Concomitant]
     Active Substance: MEROPENEM
     Indication: Pyrexia
     Dosage: UNK
     Route: 065
     Dates: start: 20210418, end: 20210423
  19. MORPHINE [Concomitant]
     Active Substance: MORPHINE
     Indication: Abdominal pain
     Dosage: UNK
     Route: 065
     Dates: start: 20210402, end: 20210404
  20. PREDNISONE [Concomitant]
     Active Substance: PREDNISONE
     Indication: Abdominal pain
     Dosage: UNK
     Route: 065
     Dates: start: 20210402, end: 20210403
  21. PREDNISONE [Concomitant]
     Active Substance: PREDNISONE
     Dosage: UNK
     Route: 065
     Dates: start: 20210403
  22. QUETIAPINE [Concomitant]
     Active Substance: QUETIAPINE
     Indication: Insomnia
     Dosage: UNK
     Route: 065
     Dates: start: 20210415, end: 20210501
  23. SULFAMETHOXAZOLE AND TRIMETHOPRIM [Concomitant]
     Active Substance: SULFAMETHOXAZOLE\TRIMETHOPRIM
     Indication: Infection prophylaxis
     Dosage: UNK
     Route: 065
     Dates: start: 20200811, end: 20210404
  24. TEICOPLANIN [Concomitant]
     Active Substance: TEICOPLANIN
     Indication: Pyrexia
     Dosage: UNK
     Route: 065
     Dates: start: 20210418, end: 20210420
  25. TEICOPLANIN [Concomitant]
     Active Substance: TEICOPLANIN
     Dosage: UNK
     Route: 065
     Dates: start: 20210420, end: 20210423
  26. TRANEXAMIC ACID [Concomitant]
     Active Substance: TRANEXAMIC ACID
     Indication: Epistaxis
     Dosage: UNK
     Route: 065
     Dates: start: 20210430, end: 20210503

REACTIONS (9)
  - Septic shock [Fatal]
  - Respiratory failure [Not Recovered/Not Resolved]
  - Sepsis [Not Recovered/Not Resolved]
  - Neutrophil count decreased [Recovered/Resolved]
  - Platelet count decreased [Not Recovered/Not Resolved]
  - Abdominal pain [Not Recovered/Not Resolved]
  - Spinal cord compression [Not Recovered/Not Resolved]
  - Urinary tract infection [Recovered/Resolved]
  - Urinary tract obstruction [Recovered/Resolved]

NARRATIVE: CASE EVENT DATE: 20210404
